FAERS Safety Report 7450688-6 (Version None)
Quarter: 2011Q2

REPORT INFORMATION
  Report Type: 
  Country: None (occurrence: None)
  Receive Date: 20110429
  Receipt Date: 20110429
  Transmission Date: 20111010
  Serious: Yes (Other)
  Sender: FDA-Public Use
  Company Number: None

PATIENT
  Sex: Female
  Weight: 92.9874 kg

DRUGS (3)
  1. VICODIN [Concomitant]
  2. NUCYNTA [Suspect]
     Indication: INTERVERTEBRAL DISC DEGENERATION
     Dosage: 75 MG (1) EVERY 4? PRN PO
     Route: 048
     Dates: start: 20110407, end: 20110410
  3. MOTRIN [Concomitant]

REACTIONS (2)
  - SPEECH DISORDER [None]
  - HALLUCINATION, VISUAL [None]
